FAERS Safety Report 11635133 (Version 5)
Quarter: 2016Q3

REPORT INFORMATION
  Report Type: Report from Study
  Country: US (occurrence: US)
  Receive Date: 20151015
  Receipt Date: 20160715
  Transmission Date: 20161109
  Serious: Yes (Hospitalization)
  Sender: FDA-Public Use
  Company Number: US-SA-2015SA125960

PATIENT
  Age: 66 Year
  Sex: Female

DRUGS (4)
  1. LEMTRADA [Suspect]
     Active Substance: ALEMTUZUMAB
     Indication: RELAPSING-REMITTING MULTIPLE SCLEROSIS
     Route: 041
     Dates: start: 20150810, end: 20150813
  2. LEMTRADA [Suspect]
     Active Substance: ALEMTUZUMAB
     Indication: RELAPSING-REMITTING MULTIPLE SCLEROSIS
     Route: 041
     Dates: start: 20150828, end: 20150828
  3. HYDROXYZINE [Concomitant]
     Active Substance: HYDROXYZINE\HYDROXYZINE HYDROCHLORIDE
     Indication: PREMEDICATION
     Dosage: PRN
     Dates: start: 20150810
  4. ACICLOVIR [Concomitant]
     Active Substance: ACYCLOVIR
     Indication: ANTIVIRAL PROPHYLAXIS
     Dates: start: 20150810

REACTIONS (10)
  - Urinary tract infection [Not Recovered/Not Resolved]
  - Infection [Recovered/Resolved]
  - Vaginal haemorrhage [Recovered/Resolved]
  - Respiratory disorder [Unknown]
  - Cough [Recovered/Resolved]
  - Contusion [Recovering/Resolving]
  - Pyrexia [Recovered/Resolved]
  - Acute pulmonary oedema [Recovered/Resolved]
  - Device occlusion [Unknown]
  - Loss of consciousness [Recovered/Resolved]

NARRATIVE: CASE EVENT DATE: 20150813
